FAERS Safety Report 6792887-2 (Version None)
Quarter: 2010Q2

REPORT INFORMATION
  Report Type: 
  Country: None (occurrence: None)
  Receive Date: 20100624
  Receipt Date: 20081119
  Transmission Date: 20101027
  Serious: Yes (Other)
  Sender: FDA-Public Use
  Company Number: US-PFIZER INC-2008084698

PATIENT
  Sex: Female
  Weight: 106.6 kg

DRUGS (15)
  1. SUTENT [Suspect]
     Indication: RENAL CELL CARCINOMA
     Dosage: DAILY 4 WEEKS ON AND 2 WEEKS OFF
     Route: 048
     Dates: start: 20080911, end: 20081001
  2. IRON [Concomitant]
     Route: 048
  3. SYNTHROID [Concomitant]
  4. FORADIL [Concomitant]
     Route: 055
  5. ALLEGRA [Concomitant]
     Dosage: AS NEEDED
     Route: 048
  6. TESSALON [Concomitant]
     Dosage: AS NEEDED
     Route: 048
  7. ACETYLSALICYLIC ACID [Concomitant]
  8. VITACAL [Concomitant]
  9. BUMEX [Concomitant]
     Indication: SWELLING
     Dosage: DAILY AS NEEDED
  10. POTASSIUM [Concomitant]
  11. VICODIN [Concomitant]
     Indication: PAIN
     Route: 048
  12. MIRALAX [Concomitant]
     Indication: CONSTIPATION
  13. OXYGEN [Concomitant]
  14. BENICAR [Concomitant]
  15. NORVASC [Concomitant]
     Route: 048

REACTIONS (6)
  - BLOOD PRESSURE INCREASED [None]
  - DRUG INTOLERANCE [None]
  - ERYTHEMA [None]
  - NAUSEA [None]
  - PRURITUS [None]
  - THROMBOCYTOPENIA [None]
